FAERS Safety Report 7131240-9 (Version None)
Quarter: 2010Q4

REPORT INFORMATION
  Report Type: 
  Country: None (occurrence: None)
  Receive Date: 20101124
  Receipt Date: 20101124
  Transmission Date: 20110411
  Serious: No
  Sender: FDA-Public Use
  Company Number: None

PATIENT
  Sex: Male
  Weight: 74.8435 kg

DRUGS (1)
  1. CARDIO RENEW (EDTA) [Suspect]
     Indication: ARTERIOSCLEROSIS
     Dosage: USED ^FOUNDATION THERAPY^ ONE MONTH PO
     Route: 048
     Dates: start: 20070201, end: 20070228

REACTIONS (3)
  - GASTROOESOPHAGEAL REFLUX DISEASE [None]
  - MALAISE [None]
  - RENAL IMPAIRMENT [None]
